FAERS Safety Report 10562290 (Version 1)
Quarter: 2014Q4

REPORT INFORMATION
  Report Type: Spontaneous
  Country: IT (occurrence: None)
  Receive Date: 20141031
  Receipt Date: 20141031
  Transmission Date: 20150529
  Serious: Yes (Other)
  Sender: FDA-Public Use
  Company Number: IT2014GSK012746

PATIENT
  Age: 55 Year
  Sex: Male

DRUGS (2)
  1. ADEFOVIR [Suspect]
     Active Substance: ADEFOVIR
     Indication: HEPATITIS B
     Dates: start: 2008
  2. LAMIVUDINE. [Suspect]
     Active Substance: LAMIVUDINE
     Indication: HEPATITIS B
     Dates: start: 2005

REACTIONS (2)
  - Hepatic lesion [None]
  - Hepatocellular carcinoma [None]
